FAERS Safety Report 7369460-0 (Version None)
Quarter: 2011Q1

REPORT INFORMATION
  Report Type: 
  Country: None (occurrence: None)
  Receive Date: 20110323
  Receipt Date: 20110308
  Transmission Date: 20110831
  Serious: Yes (Other)
  Sender: FDA-Public Use
  Company Number: PHHY2009DE56651

PATIENT
  Sex: Female
  Weight: 72 kg

DRUGS (3)
  1. INAL HEXAL [Concomitant]
     Dosage: UNK
     Dates: start: 19900101
  2. CGS 20267 [Suspect]
     Indication: BREAST CANCER
     Dosage: 2.5 MG, DAILY
     Route: 048
     Dates: start: 20070515, end: 20080930
  3. RYTMONORM [Concomitant]
     Dosage: UNK
     Dates: start: 19800101

REACTIONS (1)
  - BURNOUT SYNDROME [None]
